FAERS Safety Report 5477716-1 (Version None)
Quarter: 2007Q3

REPORT INFORMATION
  Report Type: 
  Country: None (occurrence: None)
  Receive Date: 20070927
  Receipt Date: 20070927
  Transmission Date: 20080115
  Serious: Yes (Life-Threatening)
  Sender: FDA-Public Use
  Company Number: None

PATIENT
  Age: 46 Year
  Sex: Female
  Weight: 86.1834 kg

DRUGS (7)
  1. GEODON [Suspect]
     Indication: BIPOLAR I DISORDER
     Dosage: 120MG, DAILY, ORAL  (BEGIN TAPPER 09/07/07)
     Route: 048
     Dates: start: 20070709, end: 20070907
  2. GEODON [Suspect]
  3. LAMICTAL [Concomitant]
  4. ABILIFY [Concomitant]
  5. CELEXA [Concomitant]
  6. ATENOLOL [Concomitant]
  7. COGENTIN [Concomitant]

REACTIONS (3)
  - CONVULSION [None]
  - LOSS OF CONSCIOUSNESS [None]
  - ROAD TRAFFIC ACCIDENT [None]
